FAERS Safety Report 14403050 (Version 1)
Quarter: 2018Q1

REPORT INFORMATION
  Report Type: Spontaneous
  Country: US (occurrence: US)
  Receive Date: 20180117
  Receipt Date: 20180117
  Transmission Date: 20180509
  Serious: Yes (Other)
  Sender: FDA-Public Use
  Company Number: None

PATIENT
  Age: 60 Year
  Sex: Male
  Weight: 74.84 kg

DRUGS (1)
  1. SILDENAFIL CITRATE 100MG TAB [Suspect]
     Active Substance: SILDENAFIL CITRATE
     Indication: ERECTILE DYSFUNCTION
     Dosage: ONE HALF 24 HOUR 1/2 EVERY DAY MOUTH
     Route: 048
     Dates: start: 20160102, end: 20170115

REACTIONS (2)
  - Optic nerve injury [None]
  - Blindness unilateral [None]
